FAERS Safety Report 12854016 (Version 1)
Quarter: 2016Q4

REPORT INFORMATION
  Report Type: Spontaneous
  Country: GB (occurrence: GB)
  Receive Date: 20161017
  Receipt Date: 20161017
  Transmission Date: 20170207
  Serious: Yes (Hospitalization, Other)
  Sender: FDA-Public Use
  Company Number: GB-PFIZER INC-1536285

PATIENT
  Age: 14 Year
  Sex: Female
  Weight: 57 kg

DRUGS (12)
  1. DOXORUBICIN [Concomitant]
     Active Substance: DOXORUBICIN
     Indication: OSTEOSARCOMA
     Dosage: UNK
  2. LEVOMEPROMAZINE [Concomitant]
     Active Substance: LEVOMEPROMAZINE
     Dosage: 12.5 MG, FREQ: 2 DAY; INTERVAL: 1
     Route: 048
  3. FILGRASTIM [Concomitant]
     Active Substance: FILGRASTIM
     Dosage: 300 UG, FREQ: 1 DAY; INTERVAL: 1
     Route: 058
  4. CHLORPHENAMINE [Concomitant]
     Active Substance: CHLORPHENIRAMINE MALEATE
     Dosage: 4 MG, AS NEEDED, FREQ: 3 DAY; INTERVAL: 1
     Route: 048
  5. METOCLOPRAMIDE. [Concomitant]
     Active Substance: METOCLOPRAMIDE
     Dosage: 10 MG, FREQ: 3 DAY; INTERVAL: 1
     Route: 048
  6. ONDANSETRON [Concomitant]
     Active Substance: ONDANSETRON
     Dosage: 8 MG, FREQ: 3 DAY; INTERVAL: 1
     Route: 048
  7. OXYCODONE [Concomitant]
     Active Substance: OXYCODONE
     Dosage: 20 MG, FREQ: 2 DAY; INTERVAL: 1
     Route: 048
  8. METHOTREXATE SODIUM. [Suspect]
     Active Substance: METHOTREXATE SODIUM
     Indication: OSTEOSARCOMA
     Dosage: 5 G/M 2, HIGH DOSE, CYCLIC
     Route: 042
  9. CISPLATIN. [Concomitant]
     Active Substance: CISPLATIN
     Indication: OSTEOSARCOMA
     Dosage: UNK
  10. LANSOPRAZOLE. [Concomitant]
     Active Substance: LANSOPRAZOLE
     Dosage: 30 MG, FREQ: 1 DAY; INTERVAL: 1
     Route: 048
  11. NORETHISTERONE [Concomitant]
     Active Substance: NORETHINDRONE
     Dosage: 5 MG, FREQ: 3 DAY; INTERVAL: 1
     Route: 048
  12. DOCUSATE [Concomitant]
     Active Substance: DOCUSATE
     Dosage: 100 MG, FREQ: 3 DAY; INTERVAL: 1
     Route: 048

REACTIONS (4)
  - Pleurisy [Unknown]
  - Cerebrovascular accident [Recovered/Resolved]
  - Toxic encephalopathy [Recovered/Resolved]
  - Hemiparesis [Recovered/Resolved]

NARRATIVE: CASE EVENT DATE: 20121112
